FAERS Safety Report 9299334 (Version 1)
Quarter: 2013Q2

REPORT INFORMATION
  Report Type: Spontaneous
  Country: US (occurrence: US)
  Receive Date: 20130520
  Receipt Date: 20130520
  Transmission Date: 20140414
  Serious: No
  Sender: FDA-Public Use
  Company Number: US-009507513-1305USA002419

PATIENT
  Sex: Female

DRUGS (1)
  1. AZASITE [Suspect]

REACTIONS (2)
  - Eye disorder [Not Recovered/Not Resolved]
  - Off label use [Unknown]
